FAERS Safety Report 10197448 (Version 1)
Quarter: 2014Q2

REPORT INFORMATION
  Report Type: Spontaneous
  Country: US (occurrence: None)
  Receive Date: 20140523
  Receipt Date: 20140523
  Transmission Date: 20141212
  Serious: Yes (Other)
  Sender: FDA-Public Use
  Company Number: None

PATIENT
  Age: 52 Year
  Sex: Female
  Weight: 53.98 kg

DRUGS (1)
  1. FINACEA [Suspect]
     Indication: ACNE
     Dosage: GEL 15%; MASSAGE INTO SKIN
     Route: 061
     Dates: start: 20030330, end: 20140212

REACTIONS (1)
  - Liver injury [None]
